FAERS Safety Report 11390976 (Version 2)
Quarter: 2017Q3

REPORT INFORMATION
  Report Type: Report from Study
  Country: US (occurrence: US)
  Receive Date: 20150818
  Receipt Date: 20170718
  Transmission Date: 20171127
  Serious: No
  Sender: FDA-Public Use
  Company Number: US-VANDA PHARMACEUTICALS, INC-2015TASUS000749

PATIENT
  Age: 43 Year
  Sex: Male
  Weight: 93.88 kg

DRUGS (8)
  1. HETLIOZ [Suspect]
     Active Substance: TASIMELTEON
     Dosage: UNK
  2. HETLIOZ [Suspect]
     Active Substance: TASIMELTEON
     Indication: SLEEP DISORDER
     Dosage: 20 MG, QHS
     Route: 048
     Dates: start: 201503
  3. LISINOPRIL. [Concomitant]
     Active Substance: LISINOPRIL
     Indication: HYPERTENSION
     Dosage: UKN
  4. LOVAZA [Concomitant]
     Active Substance: OMEGA-3-ACID ETHYL ESTERS
     Indication: BLOOD CHOLESTEROL ABNORMAL
     Dosage: UKN
  5. ELAVIL [Concomitant]
     Active Substance: AMITRIPTYLINE HYDROCHLORIDE
     Indication: PAIN
     Dosage: UKN
  6. ELAVIL [Concomitant]
     Active Substance: AMITRIPTYLINE HYDROCHLORIDE
     Indication: SLEEP DISORDER
  7. SEROQUEL [Concomitant]
     Active Substance: QUETIAPINE FUMARATE
     Indication: DEPRESSION
     Dosage: UN
  8. ATIVAN [Concomitant]
     Active Substance: LORAZEPAM
     Indication: POST-TRAUMATIC STRESS DISORDER
     Dosage: 1 MG, QID

REACTIONS (2)
  - Off label use [Unknown]
  - Muscle spasms [Recovered/Resolved]

NARRATIVE: CASE EVENT DATE: 201503
